FAERS Safety Report 18360055 (Version 1)
Quarter: 2020Q4

REPORT INFORMATION
  Report Type: Spontaneous
  Country: US (occurrence: US)
  Receive Date: 20201007
  Receipt Date: 20201007
  Transmission Date: 20210114
  Serious: Yes (Hospitalization)
  Sender: FDA-Public Use
  Company Number: None

PATIENT
  Age: 34 Year
  Sex: Female
  Weight: 94.6 kg

DRUGS (5)
  1. CHOLECALCIFEROL [Concomitant]
     Active Substance: CHOLECALCIFEROL
  2. STELARA [Concomitant]
     Active Substance: USTEKINUMAB
  3. VITAMIN D3 [Concomitant]
     Active Substance: CHOLECALCIFEROL
  4. DICYCLOMINE [Concomitant]
     Active Substance: DICYCLOMINE HYDROCHLORIDE
  5. STELARA [Suspect]
     Active Substance: USTEKINUMAB

REACTIONS (11)
  - Heart rate increased [None]
  - Pain [None]
  - Abdominal distension [None]
  - Small intestinal obstruction [None]
  - Abdominal pain upper [None]
  - Vomiting [None]
  - Weight decreased [None]
  - Flatulence [None]
  - Diarrhoea [None]
  - Pica [None]
  - Dyspnoea [None]
